FAERS Safety Report 9532538 (Version 1)
Quarter: 2013Q2

REPORT INFORMATION
  Report Type: Spontaneous
  Country: US (occurrence: None)
  Receive Date: 20130503
  Receipt Date: 20130503
  Transmission Date: 20140414
  Serious: Yes (Other)
  Sender: FDA-Public Use
  Company Number: 1000041475

PATIENT
  Age: 73 Year
  Sex: Female

DRUGS (9)
  1. DALIRESP [Suspect]
     Indication: CHRONIC OBSTRUCTIVE PULMONARY DISEASE
     Dates: start: 201207, end: 201207
  2. FOLIC ACID (FOLIC ACID) [Concomitant]
  3. METHOTREXATE (METHOTREXATE) [Concomitant]
  4. PREDNISONE (PREDNISONE) [Concomitant]
  5. ALBUTEROL (ALBUTEROL) [Concomitant]
  6. SPIRIVA (TIOTROPIUM BROMIDE) [Concomitant]
  7. CALCIUM (CALCIUM) [Concomitant]
  8. ASPIRIN (ACETYLSALICYLIC ACID) [Concomitant]
  9. DULERA (DULERA) [Concomitant]

REACTIONS (1)
  - Insomnia [None]
